FAERS Safety Report 8967949 (Version 3)
Quarter: 2013Q1

REPORT INFORMATION
  Report Type: Spontaneous
  Country: US (occurrence: US)
  Receive Date: 20121218
  Receipt Date: 20130314
  Transmission Date: 20140127
  Serious: Yes (Other)
  Sender: FDA-Public Use
  Company Number: US-PFIZER INC-2012310064

PATIENT
  Age: 64 Year
  Sex: Male
  Weight: 113.38 kg

DRUGS (5)
  1. LYRICA [Suspect]
     Indication: EPILEPSY
     Dosage: 150 MG, 3X/DAY
     Route: 048
     Dates: end: 2011
  2. LYRICA [Suspect]
     Indication: CONVULSION
     Dosage: UNK
     Dates: start: 2011
  3. GABAPENTIN [Suspect]
     Indication: CONVULSION
     Dosage: 900 MG (3 CAPSULES OF 300MG), 3X/DAY
     Dates: start: 2011, end: 2011
  4. GABAPENTIN [Suspect]
     Dosage: UNK
     Dates: start: 2012, end: 2012
  5. METFORMIN [Concomitant]
     Dosage: UNK

REACTIONS (1)
  - Drug ineffective [Unknown]
